FAERS Safety Report 8799097 (Version 1)
Quarter: 2012Q4

REPORT INFORMATION
  Report Type: 
  Country: US (occurrence: US)
  Receive Date: 20120920
  Receipt Date: 20120920
  Transmission Date: 20130627
  Serious: No
  Sender: FDA-Public Use
  Company Number: US-ASTRAZENECA-2011SE67951

PATIENT
  Sex: Male

DRUGS (9)
  1. LISINOPRIL [Suspect]
     Route: 048
  2. METOPROLOL SUCCINATE [Suspect]
     Route: 048
  3. OMEPRAZOLE [Suspect]
     Route: 048
  4. FUROSEMIDE [Concomitant]
  5. TERAZOSIN [Concomitant]
  6. LORATADINE [Concomitant]
  7. SIMVASTATIN [Concomitant]
  8. KLOR-CON [Concomitant]
  9. NASONEX [Concomitant]

REACTIONS (1)
  - Cardiac disorder [Unknown]
